FAERS Safety Report 15942015 (Version 1)
Quarter: 2019Q1

REPORT INFORMATION
  Report Type: Spontaneous
  Country: US (occurrence: US)
  Receive Date: 20190211
  Receipt Date: 20190211
  Transmission Date: 20190417
  Serious: Yes (Other)
  Sender: FDA-Public Use
  Company Number: None

PATIENT
  Age: 30 Year
  Sex: Female
  Weight: 54.9 kg

DRUGS (3)
  1. AMLODIPINE 5 MG PO DAILY [Concomitant]
     Dates: start: 20170817
  2. KOATE [Suspect]
     Active Substance: ANTIHEMOPHILIC FACTOR HUMAN
     Indication: THROMBOCYTOPENIC PURPURA
     Dosage: ?          OTHER FREQUENCY:TWICE PER WEEK;?
     Route: 042
  3. AMITRYPTILINE 12.G MG PO DAILY [Concomitant]
     Dates: start: 20180523

REACTIONS (2)
  - Lip erythema [None]
  - Lip pruritus [None]

NARRATIVE: CASE EVENT DATE: 20190205
